APPROVED DRUG PRODUCT: DIROXIMEL FUMARATE
Active Ingredient: DIROXIMEL FUMARATE
Strength: 231MG
Dosage Form/Route: CAPSULE, DELAYED RELEASE;ORAL
Application: A218596 | Product #001 | TE Code: AB
Applicant: ZYDUS WORLDWIDE DMCC
Approved: Nov 12, 2025 | RLD: No | RS: No | Type: RX